FAERS Safety Report 13358887 (Version 3)
Quarter: 2017Q3

REPORT INFORMATION
  Report Type: Spontaneous
  Country: CA (occurrence: CA)
  Receive Date: 20170322
  Receipt Date: 20170803
  Transmission Date: 20171127
  Serious: Yes (Other)
  Sender: FDA-Public Use
  Company Number: CA-GLAXOSMITHKLINE-CA2017039927

PATIENT
  Age: 66 Year
  Sex: Male
  Weight: 86.3 kg

DRUGS (18)
  1. MECLOZINE HYDROCHLORIDE + PYRIDOXINE HYDROCHLORIDE [Concomitant]
     Indication: HIV INFECTION
     Dosage: UNK
     Dates: start: 20080401
  2. RAMIPRIL. [Concomitant]
     Active Substance: RAMIPRIL
  3. VIREAD [Suspect]
     Active Substance: TENOFOVIR DISOPROXIL FUMARATE
     Indication: HEPATITIS B
     Dosage: UNK
     Route: 065
     Dates: start: 20100501, end: 20130914
  4. KIVEXA [Suspect]
     Active Substance: ABACAVIR SULFATE\LAMIVUDINE
     Dosage: UNK
     Route: 065
     Dates: start: 20100501
  5. KIVEXA [Suspect]
     Active Substance: ABACAVIR SULFATE\LAMIVUDINE
     Dosage: UNK
     Route: 065
     Dates: start: 20130914, end: 201703
  6. ROSUVASTATIN. [Concomitant]
     Active Substance: ROSUVASTATIN
  7. VIREAD [Suspect]
     Active Substance: TENOFOVIR DISOPROXIL FUMARATE
     Indication: HIV INFECTION
     Dosage: UNK
     Route: 065
     Dates: start: 20050906, end: 20070829
  8. BECLOMETHASONE [Concomitant]
     Active Substance: BECLOMETHASONE
  9. TRUVADA [Suspect]
     Active Substance: EMTRICITABINE\TENOFOVIR DISOPROXIL FUMARATE
     Indication: HIV INFECTION
     Dosage: UNK
     Route: 065
     Dates: start: 20090513, end: 20100501
  10. TRUVADA [Suspect]
     Active Substance: EMTRICITABINE\TENOFOVIR DISOPROXIL FUMARATE
     Indication: HEPATITIS B
     Dosage: UNK
     Route: 065
     Dates: start: 20070829, end: 20071213
  11. MECLOZINE HYDROCHLORIDE + PYRIDOXINE HYDROCHLORIDE [Concomitant]
     Dosage: UNK
     Route: 065
     Dates: start: 20100501
  12. ACYCLOVIR. [Concomitant]
     Active Substance: ACYCLOVIR
     Dosage: 400 MG, BID
  13. IPRATROPIUM [Concomitant]
     Active Substance: IPRATROPIUM
  14. EZETIMIBE. [Concomitant]
     Active Substance: EZETIMIBE
  15. KIVEXA [Suspect]
     Active Substance: ABACAVIR SULFATE\LAMIVUDINE
     Indication: HIV INFECTION
     Dosage: UNK
     Route: 065
     Dates: start: 20071215, end: 20090513
  16. MECLOZINE HYDROCHLORIDE + PYRIDOXINE HYDROCHLORIDE [Concomitant]
     Dosage: UNK
     Dates: start: 20130914
  17. ISENTRESS [Concomitant]
     Active Substance: RALTEGRAVIR POTASSIUM
     Indication: HIV INFECTION
     Dosage: UNK
     Dates: start: 20130914
  18. NEVIRAPINE. [Concomitant]
     Active Substance: NEVIRAPINE

REACTIONS (3)
  - Renal disorder [Unknown]
  - Proteinuria [Recovered/Resolved]
  - Anal cancer [Not Recovered/Not Resolved]

NARRATIVE: CASE EVENT DATE: 2009
